FAERS Safety Report 10430838 (Version 2)
Quarter: 2014Q3

REPORT INFORMATION
  Report Type: Report from Study
  Country: CA (occurrence: CA)
  Receive Date: 20140904
  Receipt Date: 20140904
  Transmission Date: 20150326
  Serious: Yes (Other)
  Sender: FDA-Public Use
  Company Number: CA-ABBVIE-13P-028-1140014-00

PATIENT
  Sex: Male
  Weight: 59.93 kg

DRUGS (4)
  1. TRUVADA [Concomitant]
     Active Substance: EMTRICITABINE\TENOFOVIR DISOPROXIL FUMARATE
     Indication: HIV INFECTION
     Dosage: 200/300 MG
     Route: 048
     Dates: start: 20130828
  2. COUMADIN [Concomitant]
     Active Substance: WARFARIN SODIUM
     Indication: PRODUCT USED FOR UNKNOWN INDICATION
     Route: 048
     Dates: start: 20140618
  3. KALETRA [Suspect]
     Active Substance: LOPINAVIR\RITONAVIR
     Indication: ANTIRETROVIRAL THERAPY
     Dosage: 200 MG/ 50 MG
     Route: 048
     Dates: start: 20130828
  4. KALETRA [Suspect]
     Active Substance: LOPINAVIR\RITONAVIR

REACTIONS (6)
  - Diarrhoea [Not Recovered/Not Resolved]
  - Meniscus removal [Unknown]
  - CD4 lymphocytes decreased [Unknown]
  - Weight decreased [Not Recovered/Not Resolved]
  - Viral load increased [Unknown]
  - Hepatitis [Unknown]

NARRATIVE: CASE EVENT DATE: 2013
